FAERS Safety Report 9846023 (Version 8)
Quarter: 2015Q1

REPORT INFORMATION
  Report Type: Report from Study
  Country: IL (occurrence: IL)
  Receive Date: 20140127
  Receipt Date: 20150311
  Transmission Date: 20150721
  Serious: Yes (Hospitalization)
  Sender: FDA-Public Use
  Company Number: PHHO2014IL001120

PATIENT
  Age: 13 Year
  Sex: Female
  Weight: 45.5 kg

DRUGS (3)
  1. ACZ885 [Suspect]
     Active Substance: CANAKINUMAB
     Dosage: 4 MG/KG, UNK
     Route: 058
  2. ACZ885 [Suspect]
     Active Substance: CANAKINUMAB
     Indication: JUVENILE IDIOPATHIC ARTHRITIS
     Dosage: 4 MG/KG, UNK
     Route: 058
     Dates: start: 20130805, end: 20140427
  3. VITAMIN D [Concomitant]
     Active Substance: CHOLECALCIFEROL
     Indication: PRODUCT USED FOR UNKNOWN INDICATION
     Route: 065

REACTIONS (5)
  - Gastroenteritis [Recovered/Resolved]
  - Juvenile idiopathic arthritis [Recovered/Resolved]
  - Lymphadenopathy [Recovered/Resolved]
  - Gastroenteritis [Recovering/Resolving]
  - Atypical pneumonia [Recovering/Resolving]

NARRATIVE: CASE EVENT DATE: 20140103
